FAERS Safety Report 5243591-3 (Version None)
Quarter: 2007Q1

REPORT INFORMATION
  Report Type: 
  Country: None (occurrence: None)
  Receive Date: 20070220
  Receipt Date: 20070220
  Transmission Date: 20070707
  Serious: Yes (Hospitalization, Disabling)
  Sender: FDA-Public Use
  Company Number: None

PATIENT
  Sex: Female
  Weight: 51.2565 kg

DRUGS (1)
  1. MIRENA [Suspect]
     Dates: start: 20050223, end: 20061009

REACTIONS (2)
  - ABDOMINAL PAIN [None]
  - IUD MIGRATION [None]
